FAERS Safety Report 7910628-X (Version None)
Quarter: 2011Q4

REPORT INFORMATION
  Report Type: 
  Country: None (occurrence: None)
  Receive Date: 20111111
  Receipt Date: 20111102
  Transmission Date: 20120403
  Serious: Yes (Other)
  Sender: FDA-Public Use
  Company Number: JP-ASTRAZENECA-2011SE66828

PATIENT
  Age: 92 Year
  Sex: Female
  Weight: 40 kg

DRUGS (2)
  1. PROPOFOL [Suspect]
     Indication: ANAESTHESIA PROCEDURE
     Route: 042
  2. REMIFENTANIL [Suspect]
     Indication: ANAESTHESIA PROCEDURE
     Dosage: 0.002MG
     Route: 042

REACTIONS (3)
  - HYPOTENSION [None]
  - BISPECTRAL INDEX DECREASED [None]
  - BRADYCARDIA [None]
